FAERS Safety Report 25935379 (Version 1)
Quarter: 2025Q4

REPORT INFORMATION
  Report Type: Spontaneous
  Country: US (occurrence: US)
  Receive Date: 20251017
  Receipt Date: 20251017
  Transmission Date: 20260117
  Serious: No
  Sender: SANOFI AVENTIS
  Company Number: US-SA-2025SA307318

PATIENT
  Sex: Male
  Weight: 79.55 kg

DRUGS (1)
  1. DUPIXENT [Suspect]
     Active Substance: DUPILUMAB
     Indication: Dermatitis atopic
     Dosage: 300 MG, QOW
     Route: 058

REACTIONS (9)
  - Eye swelling [Unknown]
  - Ocular hyperaemia [Unknown]
  - Headache [Unknown]
  - Paraphilia [Unknown]
  - Dry mouth [Unknown]
  - Weight decreased [Unknown]
  - Vision blurred [Unknown]
  - Constipation [Unknown]
  - Asthenia [Unknown]
